FAERS Safety Report 16608960 (Version 1)
Quarter: 2019Q3

REPORT INFORMATION
  Report Type: Spontaneous
  Country: DE (occurrence: DE)
  Receive Date: 20190722
  Receipt Date: 20190722
  Transmission Date: 20191004
  Serious: Yes (Life-Threatening, Hospitalization)
  Sender: FDA-Public Use
  Company Number: DE-TEVA-2019-DE-1079834

PATIENT
  Age: 82 Year
  Sex: Female

DRUGS (12)
  1. XIPAMID [Suspect]
     Active Substance: XIPAMIDE
     Dosage: 10 MG, 1-0-0-0
  2. AMARA-TROPFEN [Concomitant]
     Dosage: NK MG, 10-0-0-0, DROPS
  3. MOVICOL [Concomitant]
     Active Substance: POLYETHYLENE GLYCOL 3350\POTASSIUM CHLORIDE\SODIUM BICARBONATE\SODIUM CHLORIDE
     Dosage: NK MG, NEED UP TO 2XTGL.
  4. METOPROLOL. [Suspect]
     Active Substance: METOPROLOL
     Dosage: 23.75 MG, 1-0-1-0
  5. PANTOPRAZOL [Concomitant]
     Active Substance: PANTOPRAZOLE SODIUM
     Dosage: 40 MG, 1-0-0-0
  6. PRAMIPEXOL [Suspect]
     Active Substance: PRAMIPEXOLE
     Dosage: 0.52 MG, 0-0-1-0
  7. MADOPAR [Concomitant]
     Active Substance: BENSERAZIDE HYDROCHLORIDE\LEVODOPA
     Dosage: 100|25 MG, 1-1-0-0
  8. MAALOXAN [Concomitant]
     Active Substance: ALUMINUM HYDROXIDE\MAGNESIUM HYDROXIDE
     Dosage: NK MG, NEED UP TO 2XTGL.
  9. PRADAXA [Concomitant]
     Active Substance: DABIGATRAN ETEXILATE MESYLATE
     Dosage: 110 MG, 1-0-1-0
  10. PRAMIPEXOL [Suspect]
     Active Substance: PRAMIPEXOLE
     Dosage: 0.18 MG, 1-1-0-0
  11. ULTIBRO [Concomitant]
     Active Substance: GLYCOPYRRONIUM\INDACATEROL
     Dosage: NK MG, 1-0-0-0
  12. TORASEMID [Suspect]
     Active Substance: TORSEMIDE
     Dosage: 10 MG, 1-0-0-0

REACTIONS (8)
  - Hyponatraemia [Unknown]
  - Hypokalaemia [Unknown]
  - Syncope [Unknown]
  - Product administration error [Unknown]
  - Hypotension [Unknown]
  - General physical health deterioration [Unknown]
  - Confusional state [Unknown]
  - Orthostatic intolerance [Unknown]
